FAERS Safety Report 5239101-7 (Version None)
Quarter: 2007Q1

REPORT INFORMATION
  Report Type: 
  Country: None (occurrence: None)
  Receive Date: 20070212
  Receipt Date: 20070131
  Transmission Date: 20070707
  Serious: Yes (Hospitalization)
  Sender: FDA-Public Use
  Company Number: 2006-04928

PATIENT
  Age: 44 Year
  Sex: Female

DRUGS (4)
  1. TRELSTAR DEPOT [Suspect]
     Indication: BREAST CANCER
     Dosage: SUBCUTANEOUS
     Route: 058
     Dates: start: 20060810, end: 20060810
  2. EPIRUBICIN [Suspect]
     Dates: start: 20060810
  3. CYCLOPHOSPHAMIDE [Suspect]
     Dates: start: 20060810
  4. FLUOROURACIL [Suspect]
     Dates: start: 20060810

REACTIONS (3)
  - BACTERIAL INFECTION [None]
  - NEUTROPENIA [None]
  - THROMBOSIS [None]
